FAERS Safety Report 7016986 (Version 5)
Quarter: 2012Q4

REPORT INFORMATION
  Report Type: Report from Study
  Country: US (occurrence: US)
  Receive Date: 20090611
  Receipt Date: 20121214
  Transmission Date: 20130627
  Serious: Yes (Hospitalization, Other)
  Sender: FDA-Public Use
  Company Number: US-ROCHE-627724

PATIENT
  Sex: Female
  Weight: 63.5 kg

DRUGS (11)
  1. CAPECITABINE [Suspect]
     Indication: NEOPLASM MALIGNANT
     Dosage: TEMPORARILY DISCONTINUED
     Route: 048
     Dates: start: 20090222, end: 20090530
  2. CAPECITABINE [Suspect]
     Dosage: TAKEN 2 TABLETS IN AM AND 1 TABLET IN PM.
     Route: 048
     Dates: start: 20090303, end: 20091106
  3. CAPECITABINE [Suspect]
     Route: 048
  4. TYKERB [Suspect]
     Indication: NEOPLASM MALIGNANT
     Route: 065
  5. LYSINE [Concomitant]
     Route: 065
  6. VITAMIN B6 [Concomitant]
     Route: 065
  7. VITAMIN B12 [Concomitant]
     Route: 065
  8. METOPROLOL [Concomitant]
     Route: 065
  9. SYNTHROID [Concomitant]
     Route: 065
  10. NEURONTIN [Concomitant]
     Route: 065
  11. MS CONTIN [Concomitant]
     Route: 065

REACTIONS (10)
  - Intestinal obstruction [Unknown]
  - Diarrhoea [Recovering/Resolving]
  - Dry skin [Not Recovered/Not Resolved]
  - Localised infection [Not Recovered/Not Resolved]
  - Skin exfoliation [Unknown]
  - Neuropathy peripheral [Not Recovered/Not Resolved]
  - Skin disorder [Unknown]
  - Onychomadesis [Unknown]
  - Rash [Unknown]
  - Drug ineffective [Unknown]
